FAERS Safety Report 20071267 (Version 1)
Quarter: 2021Q4

REPORT INFORMATION
  Report Type: Spontaneous
  Country: None (occurrence: CN)
  Receive Date: 20211115
  Receipt Date: 20211115
  Transmission Date: 20220303
  Serious: Yes (Other)
  Sender: FDA-Public Use
  Company Number: CN-Jiangsu Hengrui Medicine Co., Ltd.-2121892

PATIENT
  Age: 49 Year
  Sex: Female

DRUGS (5)
  1. CISATRACURIUM BESYLATE [Suspect]
     Active Substance: CISATRACURIUM BESYLATE
     Indication: Induction of anaesthesia
     Route: 041
  2. CILASTATIN SODIUM\IMIPENEM [Concomitant]
     Active Substance: CILASTATIN SODIUM\IMIPENEM
     Dates: start: 20191212, end: 20191212
  3. MIDAZOLAM [Concomitant]
     Active Substance: MIDAZOLAM
     Dates: start: 20191212, end: 20191212
  4. SUFENTANIL [Concomitant]
     Active Substance: SUFENTANIL
     Dates: start: 20191212, end: 20191212
  5. PROPOFOL [Concomitant]
     Active Substance: PROPOFOL
     Route: 041
     Dates: start: 20191212, end: 20191212

REACTIONS (1)
  - Pulmonary arterial hypertension [Recovering/Resolving]

NARRATIVE: CASE EVENT DATE: 20191212
